FAERS Safety Report 6412686-0 (Version None)
Quarter: 2009Q4

REPORT INFORMATION
  Report Type: 
  Country: None (occurrence: None)
  Receive Date: 20091023
  Receipt Date: 20091019
  Transmission Date: 20100525
  Serious: Yes (Death, Hospitalization, Other)
  Sender: FDA-Public Use
  Company Number: PHHY2009BR27773

PATIENT
  Sex: Female

DRUGS (19)
  1. FORASEQ [Suspect]
     Indication: BRONCHITIS
     Dosage: UNK
  2. FORASEQ [Suspect]
     Indication: PNEUMONIA
  3. METFORMIN HCL [Concomitant]
     Indication: DIABETES MELLITUS
     Dosage: 850 MG, TID
     Route: 048
  4. AMARYL [Concomitant]
     Indication: DIABETES MELLITUS
     Dosage: 2 MG, QD
     Route: 048
  5. ACETYLSALICYLIC ACID [Concomitant]
     Indication: BLOOD DISORDER
     Dosage: 1 DF
     Route: 048
  6. POLARAMINE [Concomitant]
     Indication: HYPERSENSITIVITY
     Dosage: 2 MG, BID
     Route: 048
  7. ASCORBIC ACID [Concomitant]
     Dosage: 500 MG, QD
     Route: 048
  8. OMEPRAZOLE [Concomitant]
     Indication: GASTROINTESTINAL DISORDER
     Dosage: 20 MG, QD
     Route: 048
  9. CAPTOPRIL [Concomitant]
     Dosage: 1 DF, BID
     Route: 048
  10. AMLOVASC [Concomitant]
     Indication: HYPERTENSION
     Dosage: 5 MG, BID
     Route: 048
  11. SIMVASTATIN [Concomitant]
     Indication: BLOOD CHOLESTEROL INCREASED
     Dosage: 20 MG, QHS
     Route: 048
  12. SODIUM CROMOGLICATE [Concomitant]
     Indication: HYPERSENSITIVITY
     Dosage: 1 DF, PRN, 1 APPLICATION IN EACH NOSTRIL ON THE MORNING AND AT NIGHT ONLY WHEN SHE HAD ALLERGY
     Route: 045
  13. AMOXICILLIN [Concomitant]
     Indication: PNEUMONIA
     Route: 048
  14. DAFLON (DIOSMIN/HESPERIDIN) [Concomitant]
     Indication: SWELLING
     Dosage: UNK
     Route: 048
     Dates: end: 20090628
  15. DIACEREIN [Concomitant]
     Indication: OSTEOARTHRITIS
     Dosage: USED FOR 90 DAY
     Route: 048
     Dates: start: 20080101
  16. COAL TAR [Concomitant]
     Indication: PSORIASIS
     Dosage: FOR 2 YEARS APPROXIMATELY
     Route: 061
  17. UREA [Concomitant]
     Indication: PSORIASIS
     Dosage: ONCE DAILY
     Route: 061
  18. FISIOGEL [Concomitant]
     Indication: PSORIASIS
     Dosage: FOR 2 YEARS APPROXIMATELY
     Route: 061
  19. INL/BACT HP [Concomitant]
     Indication: HYPERSENSITIVITY
     Dosage: USED 2 DOSES
     Route: 058

REACTIONS (10)
  - CARDIAC ARREST [None]
  - CARDIAC DISORDER [None]
  - CARDIO-RESPIRATORY ARREST [None]
  - FEELING ABNORMAL [None]
  - GAIT DISTURBANCE [None]
  - GENERALISED OEDEMA [None]
  - HEART RATE INCREASED [None]
  - PAIN [None]
  - PLEURAL EFFUSION [None]
  - PNEUMONIA [None]
